FAERS Safety Report 21047743 (Version 1)
Quarter: 2022Q3

REPORT INFORMATION
  Report Type: Report from Study
  Country: US (occurrence: US)
  Receive Date: 20220706
  Receipt Date: 20220706
  Transmission Date: 20221027
  Serious: Yes (Hospitalization)
  Sender: FDA-Public Use
  Company Number: US-PFIZER INC-PV202200012491

PATIENT
  Age: 28 Year
  Sex: Male
  Weight: 59.5 kg

DRUGS (13)
  1. HYDROCORTISONE [Suspect]
     Active Substance: HYDROCORTISONE
     Indication: Chronic graft versus host disease
     Dosage: 20 MG AM AND 10MG PM,  INTRATHECAL, MILLIGRAM/SQ. METER
     Route: 048
     Dates: start: 20211124
  2. ITACITINIB [Suspect]
     Active Substance: ITACITINIB
     Indication: Chronic graft versus host disease
     Dosage: 200 MG, 1X/DAY
     Route: 048
     Dates: start: 20210405, end: 20220601
  3. ITACITINIB [Suspect]
     Active Substance: ITACITINIB
     Dosage: UNK
     Route: 048
     Dates: start: 20220603
  4. PREDNISONE [Suspect]
     Active Substance: PREDNISONE
     Indication: Chronic graft versus host disease
     Dosage: 50 MG, 1X/DAY
     Route: 048
     Dates: start: 20210402, end: 20210420
  5. PREDNISONE [Suspect]
     Active Substance: PREDNISONE
     Dosage: 15 MG, 1X/DAY
     Route: 048
     Dates: start: 20210421, end: 20210427
  6. PREDNISONE [Suspect]
     Active Substance: PREDNISONE
     Dosage: 30 MG, 1X/DAY
     Route: 048
     Dates: start: 20210428, end: 20210505
  7. PREDNISONE [Suspect]
     Active Substance: PREDNISONE
     Dosage: 20 MG, 1X/DAY
     Route: 048
     Dates: start: 20210506, end: 20220511
  8. PREDNISONE [Suspect]
     Active Substance: PREDNISONE
     Dosage: 10 MG, 1X/DAY
     Route: 048
     Dates: start: 20210512, end: 20210701
  9. PREDNISONE [Suspect]
     Active Substance: PREDNISONE
     Dosage: 5 MG, 1X/DAY
     Route: 048
     Dates: start: 20210702
  10. SUBOXONE [Concomitant]
     Active Substance: BUPRENORPHINE HYDROCHLORIDE\NALOXONE HYDROCHLORIDE
     Dosage: UNK
     Dates: start: 202009
  11. MAGNESIUM OXIDE [Concomitant]
     Active Substance: MAGNESIUM OXIDE
     Dosage: UNK
     Dates: start: 202011
  12. PANTOPRAZOLE [Concomitant]
     Active Substance: PANTOPRAZOLE
     Dosage: UNK
     Dates: start: 201901
  13. POSACONAZOLE [Concomitant]
     Active Substance: POSACONAZOLE
     Dosage: UNK
     Dates: start: 202001

REACTIONS (2)
  - Abdominal pain [Recovered/Resolved]
  - Abdominal pain [Not Recovered/Not Resolved]

NARRATIVE: CASE EVENT DATE: 20220531
